FAERS Safety Report 14533745 (Version 1)
Quarter: 2018Q1

REPORT INFORMATION
  Report Type: Spontaneous
  Country: US (occurrence: US)
  Receive Date: 20180215
  Receipt Date: 20180215
  Transmission Date: 20180509
  Serious: Yes (Other)
  Sender: FDA-Public Use
  Company Number: US-ACCORD-063380

PATIENT
  Age: 39 Year
  Sex: Female
  Weight: 58.06 kg

DRUGS (3)
  1. AMBIEN PRN [Concomitant]
  2. CLONAZEPAM ACCORD [Suspect]
     Active Substance: CLONAZEPAM
     Indication: ANXIETY
     Dosage: STRENGTH: 2 MG
     Route: 048
  3. LAMICTAL [Concomitant]
     Active Substance: LAMOTRIGINE

REACTIONS (10)
  - Amnesia [Unknown]
  - Paranoia [Unknown]
  - Withdrawal syndrome [Unknown]
  - Paraesthesia [Unknown]
  - Confusional state [Unknown]
  - Suicide attempt [Unknown]
  - Drug tolerance [Unknown]
  - Agitation [Unknown]
  - Condition aggravated [Unknown]
  - Psychotic disorder [Unknown]
